FAERS Safety Report 17654918 (Version 2)
Quarter: 2020Q3

REPORT INFORMATION
  Report Type: Spontaneous
  Country: JP (occurrence: JP)
  Receive Date: 20200410
  Receipt Date: 20200904
  Transmission Date: 20201102
  Serious: Yes (Death, Other)
  Sender: FDA-Public Use
  Company Number: JP-GLAXOSMITHKLINE-JP2020JPN060134

PATIENT
  Age: 43 Year
  Sex: Female

DRUGS (3)
  1. FLOLAN [Suspect]
     Active Substance: EPOPROSTENOL SODIUM
     Dosage: 1.34 NG/KG/MIN
     Route: 042
  2. MACITENTAN [Concomitant]
     Active Substance: MACITENTAN
     Dosage: UNK
  3. FLOLAN [Suspect]
     Active Substance: EPOPROSTENOL SODIUM
     Indication: PULMONARY HYPERTENSION
     Dosage: UNK
     Route: 042

REACTIONS (6)
  - Diarrhoea [Unknown]
  - Respiratory disorder [Unknown]
  - Multiple organ dysfunction syndrome [Fatal]
  - Acidosis [Fatal]
  - Headache [Unknown]
  - Hypoxia [Unknown]
